FAERS Safety Report 4735676-2 (Version None)
Quarter: 2005Q3

REPORT INFORMATION
  Report Type: 
  Country: None (occurrence: None)
  Receive Date: 20050804
  Receipt Date: 20050725
  Transmission Date: 20060218
  Serious: Yes (Hospitalization)
  Sender: FDA-Public Use
  Company Number: 2005094298

PATIENT
  Sex: Female
  Weight: 81.6475 kg

DRUGS (13)
  1. BEXTRA [Suspect]
     Indication: ARTHRITIS
     Dosage: 10 MG (10 MG, 1 IN 1 D), ORAL
     Route: 048
     Dates: start: 20040401
  2. PLAVIX [Concomitant]
  3. ATENOLOL [Concomitant]
  4. ZOCOR [Concomitant]
  5. POTASSIUM CHLORIDE [Concomitant]
  6. LASIX (FUROSEMIDE0 [Concomitant]
  7. MINITRAN (GLYCERYL TRINITRATE) [Concomitant]
  8. CYMBALTA [Concomitant]
  9. ACTOS [Concomitant]
  10. HUMALOG [Concomitant]
  11. LANTUS [Concomitant]
  12. INDOCIN [Concomitant]
  13. PROVIGIL [Concomitant]

REACTIONS (4)
  - ARTERIAL OCCLUSIVE DISEASE [None]
  - CARDIAC DISORDER [None]
  - HEART RATE INCREASED [None]
  - MIGRAINE [None]
